FAERS Safety Report 6768477-4 (Version None)
Quarter: 2010Q2

REPORT INFORMATION
  Report Type: 
  Country: None (occurrence: None)
  Receive Date: 20100614
  Receipt Date: 20100514
  Transmission Date: 20101027
  Serious: No
  Sender: FDA-Public Use
  Company Number: US-BAYER-201023588NA

PATIENT
  Age: 27 Year
  Sex: Male
  Weight: 102 kg

DRUGS (5)
  1. ULTRAVIST 300 [Suspect]
     Indication: COMPUTERISED TOMOGRAM ABDOMEN
     Dosage: TOTAL DAILY DOSE: 150 ML  UNIT DOSE: 300 ML
     Route: 042
     Dates: start: 20100514, end: 20100514
  2. DILAUDID [Concomitant]
  3. COLACE [Concomitant]
  4. ACIPHEX [Concomitant]
  5. READI-CAT [Concomitant]
     Route: 048
     Dates: start: 20100514, end: 20100514

REACTIONS (2)
  - NAUSEA [None]
  - VOMITING [None]
